FAERS Safety Report 7965602-4 (Version None)
Quarter: 2011Q4

REPORT INFORMATION
  Report Type: 
  Country: None (occurrence: None)
  Receive Date: 20111208
  Receipt Date: 20111129
  Transmission Date: 20120403
  Serious: Yes (Other)
  Sender: FDA-Public Use
  Company Number: BR-BAYER-2011-113123

PATIENT
  Age: 42 Year
  Sex: Female
  Weight: 64 kg

DRUGS (3)
  1. MIRENA [Suspect]
     Indication: CONTRACEPTION
     Dosage: 20 MCG/24HR, CONT
     Route: 015
     Dates: start: 20070401
  2. ANTIBIOTICS [Concomitant]
     Indication: BREAST OPERATION
  3. ANTI-INFLAMMATORY [Concomitant]
     Indication: BREAST OPERATION

REACTIONS (3)
  - FOCAL NODULAR HYPERPLASIA [None]
  - VAGINAL HAEMORRHAGE [None]
  - AMENORRHOEA [None]
